FAERS Safety Report 10222424 (Version 1)
Quarter: 2014Q2

REPORT INFORMATION
  Report Type: Spontaneous
  Country: CN (occurrence: CN)
  Receive Date: 20140606
  Receipt Date: 20140606
  Transmission Date: 20141212
  Serious: Yes (Other)
  Sender: FDA-Public Use
  Company Number: CN-BAYER-2014-085069

PATIENT
  Age: 34 Year
  Sex: Female
  Weight: 60 kg

DRUGS (1)
  1. IOPROMIDE [Suspect]
     Indication: IMAGING PROCEDURE
     Dosage: 70 ML, QD
     Route: 042
     Dates: start: 20130701, end: 20130701

REACTIONS (3)
  - Conjunctival haemorrhage [Recovering/Resolving]
  - Rash [Recovering/Resolving]
  - Hypoaesthesia [Recovering/Resolving]
